FAERS Safety Report 11218159 (Version 1)
Quarter: 2015Q2

REPORT INFORMATION
  Report Type: Report from Study
  Country: CA (occurrence: CA)
  Receive Date: 20150625
  Receipt Date: 20150625
  Transmission Date: 20150821
  Serious: Yes (Hospitalization)
  Sender: FDA-Public Use
  Company Number: CA-BIOGENIDEC-2015BI084072

PATIENT
  Age: 48 Year
  Sex: Female

DRUGS (2)
  1. FAMPYRA [Suspect]
     Active Substance: DALFAMPRIDINE
     Indication: GAIT DISTURBANCE
     Route: 048
     Dates: start: 20150122, end: 20150602
  2. MODAFINIL. [Concomitant]
     Active Substance: MODAFINIL

REACTIONS (11)
  - Gait disturbance [Recovered/Resolved]
  - Hypoaesthesia [Recovered/Resolved]
  - Drug dose omission [Recovered/Resolved]
  - Seizure [Recovered/Resolved]
  - Amnesia [Recovered/Resolved with Sequelae]
  - Respiratory arrest [Recovered/Resolved]
  - Pulse absent [Recovered/Resolved]
  - Skeletal injury [Not Recovered/Not Resolved]
  - Belligerence [Recovered/Resolved]
  - Disorientation [Recovered/Resolved]
  - Malaise [Recovered/Resolved]

NARRATIVE: CASE EVENT DATE: 20150602
